FAERS Safety Report 15818932 (Version 1)
Quarter: 2019Q1

REPORT INFORMATION
  Report Type: Spontaneous
  Country: SE (occurrence: SE)
  Receive Date: 20190114
  Receipt Date: 20190114
  Transmission Date: 20190417
  Serious: Yes (Other)
  Sender: FDA-Public Use
  Company Number: SE-TEVA-2019-SE-997851

PATIENT
  Age: 40 Year
  Sex: Male

DRUGS (1)
  1. METOPROLOL. [Suspect]
     Active Substance: METOPROLOL
     Route: 065
     Dates: start: 20170201, end: 20181120

REACTIONS (1)
  - Peripheral vascular disorder [Recovered/Resolved]

NARRATIVE: CASE EVENT DATE: 201811
